FAERS Safety Report 12240086 (Version 2)
Quarter: 2016Q2

REPORT INFORMATION
  Report Type: Spontaneous
  Country: IT (occurrence: IT)
  Receive Date: 20160405
  Receipt Date: 20160412
  Transmission Date: 20160815
  Serious: Yes (Other)
  Sender: FDA-Public Use
  Company Number: IT-ELI_LILLY_AND_COMPANY-IT201603010103

PATIENT
  Age: 59 Year
  Sex: Female

DRUGS (16)
  1. ZARELIS [Suspect]
     Active Substance: VENLAFAXINE HYDROCHLORIDE
     Indication: DRUG ABUSE
     Dosage: UNK UNK, UNKNOWN
     Route: 065
  2. VALSARTAN. [Suspect]
     Active Substance: VALSARTAN
     Dosage: 1680 MG, QD
     Route: 048
     Dates: start: 20160114, end: 20160114
  3. EUTIROX [Suspect]
     Active Substance: LEVOTHYROXINE SODIUM
     Dosage: 50 DF, QD
     Route: 048
     Dates: start: 20160114, end: 20160114
  4. VALSARTAN. [Suspect]
     Active Substance: VALSARTAN
     Indication: DRUG ABUSE
     Dosage: UNK UNK, UNKNOWN
     Route: 065
  5. OLANZAPINE. [Suspect]
     Active Substance: OLANZAPINE
     Dosage: 700 MG, QD
     Route: 065
     Dates: start: 20160114, end: 20160114
  6. OLANZAPINE. [Suspect]
     Active Substance: OLANZAPINE
     Indication: DRUG ABUSE
     Dosage: UNK UNK, UNKNOWN
     Route: 065
  7. AMISULPRIDE [Suspect]
     Active Substance: AMISULPRIDE
     Dosage: 2000 MG, QD
     Route: 048
     Dates: start: 20160114, end: 20160114
  8. LEVOFLOXACINE                      /01278901/ [Suspect]
     Active Substance: LEVOFLOXACIN
     Indication: DRUG ABUSE
     Dosage: UNK UNK, UNKNOWN
     Route: 065
  9. AMISULPRIDE [Suspect]
     Active Substance: AMISULPRIDE
     Indication: DRUG ABUSE
     Dosage: UNK UNK, UNKNOWN
     Route: 065
  10. EUTIROX [Suspect]
     Active Substance: LEVOTHYROXINE SODIUM
     Indication: DRUG ABUSE
     Dosage: UNK UNK, UNKNOWN
     Route: 065
  11. LEVOFLOXACINE                      /01278901/ [Suspect]
     Active Substance: LEVOFLOXACIN
     Dosage: 5 DF, QD
     Route: 048
     Dates: start: 20160114, end: 20160114
  12. EUTIROX [Suspect]
     Active Substance: LEVOTHYROXINE SODIUM
     Dosage: 10 DF, QD
     Route: 048
     Dates: start: 20160114, end: 20160114
  13. XEPLION [Concomitant]
     Active Substance: PALIPERIDONE PALMITATE
     Indication: PRODUCT USED FOR UNKNOWN INDICATION
     Dosage: 150 MG, MONTHLY (1/M)
     Route: 065
  14. SERTRALINE [Concomitant]
     Active Substance: SERTRALINE HYDROCHLORIDE
     Indication: PRODUCT USED FOR UNKNOWN INDICATION
     Dosage: 50 MG, UNKNOWN
     Route: 065
  15. EUTIROX [Suspect]
     Active Substance: LEVOTHYROXINE SODIUM
     Indication: DRUG ABUSE
     Dosage: UNK UNK, UNKNOWN
     Route: 065
  16. ZARELIS [Suspect]
     Active Substance: VENLAFAXINE HYDROCHLORIDE
     Dosage: 14 DF, QD
     Route: 048
     Dates: start: 20160114, end: 20160114

REACTIONS (5)
  - Intentional overdose [Recovering/Resolving]
  - Sopor [Recovering/Resolving]
  - Intentional self-injury [Recovering/Resolving]
  - Toxicity to various agents [Recovering/Resolving]
  - Drug abuse [Recovering/Resolving]

NARRATIVE: CASE EVENT DATE: 20160114
